FAERS Safety Report 11189112 (Version 1)
Quarter: 2015Q2

REPORT INFORMATION
  Report Type: Spontaneous
  Country: CZ (occurrence: CZ)
  Receive Date: 20150615
  Receipt Date: 20150615
  Transmission Date: 20150821
  Serious: Yes (Other)
  Sender: FDA-Public Use
  Company Number: CZ-AMGEN-CZESP2015057881

PATIENT
  Age: 40 Year
  Sex: Male

DRUGS (1)
  1. ENBREL [Suspect]
     Active Substance: ETANERCEPT
     Indication: PSORIASIS
     Dosage: 50 MG, WEEKLY
     Route: 065

REACTIONS (1)
  - Psoriatic arthropathy [Unknown]

NARRATIVE: CASE EVENT DATE: 201408
